FAERS Safety Report 5317392-1 (Version None)
Quarter: 2007Q2

REPORT INFORMATION
  Report Type: 
  Country: None (occurrence: None)
  Receive Date: 20070504
  Receipt Date: 20070427
  Transmission Date: 20071010
  Serious: Yes (Hospitalization, Other)
  Sender: FDA-Public Use
  Company Number: US-ABBOTT-07P-163-0366465-00

PATIENT
  Sex: Female
  Weight: 101 kg

DRUGS (3)
  1. TRICOR [Suspect]
     Indication: BLOOD TRIGLYCERIDES INCREASED
     Dates: start: 20061001, end: 20070401
  2. TRICOR [Suspect]
     Indication: LOW DENSITY LIPOPROTEIN INCREASED
  3. TRICOR [Suspect]
     Indication: HIGH DENSITY LIPOPROTEIN DECREASED

REACTIONS (2)
  - BONE MARROW FAILURE [None]
  - HAEMOGLOBIN DECREASED [None]
